FAERS Safety Report 9631302 (Version 2)
Quarter: 2013Q4

REPORT INFORMATION
  Report Type: Spontaneous
  Country: US (occurrence: US)
  Receive Date: 20131018
  Receipt Date: 20131118
  Transmission Date: 20140711
  Serious: No
  Sender: FDA-Public Use
  Company Number: US-TEVA-438908USA

PATIENT
  Age: 44 Year
  Sex: Female
  Weight: 88.53 kg

DRUGS (8)
  1. PARAGARD 380A [Suspect]
     Indication: CONTRACEPTION
     Route: 015
     Dates: start: 20131009, end: 20131014
  2. HYZAAR [Concomitant]
     Indication: HYPERTENSION
  3. EFFEXOR XL [Concomitant]
     Indication: ANXIETY
  4. NEXIUM [Concomitant]
  5. MOBIC [Concomitant]
  6. ZINC [Concomitant]
  7. POTASSIUM [Concomitant]
  8. OVCON-35 [Concomitant]
     Dosage: 0.4-35MG-MCG
     Route: 048

REACTIONS (2)
  - Device expulsion [Recovered/Resolved]
  - Abdominal pain lower [Recovered/Resolved]
